FAERS Safety Report 9492366 (Version 1)
Quarter: 2013Q3

REPORT INFORMATION
  Report Type: Report from Study
  Country: US (occurrence: US)
  Receive Date: 20130830
  Receipt Date: 20130830
  Transmission Date: 20140515
  Serious: Yes (Other)
  Sender: FDA-Public Use
  Company Number: US-TEVA-429373USA

PATIENT
  Age: 52 Year
  Sex: Female

DRUGS (1)
  1. COPAXONE [Suspect]
     Indication: MULTIPLE SCLEROSIS
     Dates: start: 20091001

REACTIONS (9)
  - Immediate post-injection reaction [Unknown]
  - Hyperhidrosis [Unknown]
  - Faecal incontinence [Unknown]
  - Swollen tongue [Unknown]
  - Swelling face [Unknown]
  - Dry mouth [Unknown]
  - Fatigue [Unknown]
  - Muscular weakness [Unknown]
  - Dehydration [Unknown]
